FAERS Safety Report 8608073-7 (Version None)
Quarter: 2012Q3

REPORT INFORMATION
  Report Type: 
  Country: None (occurrence: None)
  Receive Date: 20120821
  Receipt Date: 20120817
  Transmission Date: 20120928
  Serious: Yes (Other)
  Sender: FDA-Public Use
  Company Number: PHHY2012AR071254

PATIENT
  Sex: Female

DRUGS (2)
  1. ALPARTAN [Concomitant]
  2. DIOVAN HCT [Suspect]
     Indication: BLOOD PRESSURE ABNORMAL
     Dosage: 80 MG, DAILY

REACTIONS (3)
  - DEAFNESS [None]
  - VISUAL ACUITY REDUCED [None]
  - OSTEOPOROSIS [None]
